FAERS Safety Report 7086200-3 (Version None)
Quarter: 2010Q4

REPORT INFORMATION
  Report Type: 
  Country: None (occurrence: None)
  Receive Date: 20101105
  Receipt Date: 20101025
  Transmission Date: 20110411
  Serious: Yes (Death, Other)
  Sender: FDA-Public Use
  Company Number: US-ELI_LILLY_AND_COMPANY-US201010005555

PATIENT
  Age: 55 Year
  Sex: Male
  Weight: 81.633 kg

DRUGS (2)
  1. OLANZAPINE [Suspect]
  2. PAROXETINE HCL [Concomitant]
     Dosage: 50 MG, EACH EVENING

REACTIONS (5)
  - CARDIAC DISORDER [None]
  - DIARRHOEA [None]
  - GAIT DISTURBANCE [None]
  - HYPERTHERMIA [None]
  - UNRESPONSIVE TO STIMULI [None]
